FAERS Safety Report 6148507-3 (Version None)
Quarter: 2009Q2

REPORT INFORMATION
  Report Type: 
  Country: None (occurrence: None)
  Receive Date: 20090408
  Receipt Date: 20090331
  Transmission Date: 20091009
  Serious: Yes (Hospitalization)
  Sender: FDA-Public Use
  Company Number: US-WYE-H08779809

PATIENT
  Sex: Female
  Weight: 98.7 kg

DRUGS (19)
  1. TEMSIROLIMUS [Suspect]
     Indication: MULTIPLE MYELOMA
     Dosage: 25 MG DAYS 1,8,15,22 AND 29 EVERY 35 DAYS
     Route: 042
     Dates: start: 20090123, end: 20090303
  2. TEMSIROLIMUS [Suspect]
     Route: 042
     Dates: start: 20090324, end: 20090324
  3. ASPIRIN [Concomitant]
  4. LORAZEPAM [Concomitant]
     Route: 048
  5. COMPAZINE [Concomitant]
  6. DURAGESIC-100 [Concomitant]
     Route: 062
  7. FLUCONAZOLE [Concomitant]
  8. HYDROCHLOROTHIAZIDE [Concomitant]
  9. IMODIUM [Concomitant]
  10. LYRICA [Concomitant]
     Dosage: 50 MG EVERY MORNING, 100 MG AT BEDTIME
     Route: 048
  11. NORVASC [Concomitant]
  12. OXYCODONE HCL [Concomitant]
     Indication: PAIN
     Dosage: 5 -10 MG EVERY 6 HOURS AS NEEDED
     Route: 048
  13. PERIDEX [Concomitant]
  14. PROTONIX [Concomitant]
     Route: 048
  15. TOPROL-XL [Concomitant]
     Route: 048
  16. VALTREX [Concomitant]
  17. ZOFRAN [Concomitant]
     Route: 048
  18. VASOTEC [Concomitant]
  19. BORTEZOMIB [Suspect]
     Indication: MULTIPLE MYELOMA
     Dosage: 1.6 MG/M^2 DAYS 1,8,15,AND 22 EVERY 35 DAYS
     Dates: start: 20090123, end: 20090303

REACTIONS (1)
  - PHLEBITIS [None]
